FAERS Safety Report 13025172 (Version 1)
Quarter: 2016Q4

REPORT INFORMATION
  Report Type: Report from Study
  Country: US (occurrence: US)
  Receive Date: 20161214
  Receipt Date: 20161214
  Transmission Date: 20170207
  Serious: Yes (Other)
  Sender: FDA-Public Use
  Company Number: US-ROCHE-1866349

PATIENT
  Sex: Female

DRUGS (14)
  1. MELOXICAM. [Concomitant]
     Active Substance: MELOXICAM
     Dosage: 1 TABLET
     Route: 048
  2. DEXAMETHASONE SODIUM PHOSPHATE. [Concomitant]
     Active Substance: DEXAMETHASONE SODIUM PHOSPHATE
     Dosage: FOR 1DAY
     Route: 042
  3. MOVANTIK [Concomitant]
     Active Substance: NALOXEGOL OXALATE
     Dosage: PRN,1 TABLET
     Route: 048
  4. FAMOTIDINE. [Concomitant]
     Active Substance: FAMOTIDINE
     Dosage: ONCE
     Route: 042
  5. RITUXAN [Suspect]
     Active Substance: RITUXIMAB
     Indication: NON-HODGKIN^S LYMPHOMA
     Dosage: DAILY CONTINUE OVER 2 HR FOR 1 DAY
     Route: 042
     Dates: start: 20161130
  6. ESCITALOPRAM OXALATE. [Concomitant]
     Active Substance: ESCITALOPRAM OXALATE
     Dosage: AT BED TIME  1 TABLET
     Route: 048
  7. WARFARIN SODIUM. [Concomitant]
     Active Substance: WARFARIN SODIUM
     Dosage: BY M,F,3 TABLET
     Route: 048
  8. CYANOCOBALAMIN. [Concomitant]
     Active Substance: CYANOCOBALAMIN
     Dosage: 1000 MCG/ML   1 INJECTION
     Route: 065
  9. DIPHENHYDRAMINE HCL [Concomitant]
     Active Substance: DIPHENHYDRAMINE HYDROCHLORIDE
     Dosage: FOR 1 DAY
     Route: 042
  10. EXEMESTANE. [Concomitant]
     Active Substance: EXEMESTANE
     Dosage: FOR 30DAYS 1 TABLET
     Route: 048
  11. ACETAMINOPHEN. [Concomitant]
     Active Substance: ACETAMINOPHEN
     Route: 048
  12. ENOXAPARIN SODIUM. [Concomitant]
     Active Substance: ENOXAPARIN SODIUM
     Dosage: 80MG/0.8ML
     Route: 058
  13. RITUXAN [Suspect]
     Active Substance: RITUXIMAB
     Indication: BREAST CANCER FEMALE
  14. TYLENOL [Concomitant]
     Active Substance: ACETAMINOPHEN
     Dosage: 2  TABLET
     Route: 048

REACTIONS (11)
  - Pulmonary embolism [Unknown]
  - Fatigue [Unknown]
  - Pain [Unknown]
  - Osteopenia [Unknown]
  - Anaemia [Unknown]
  - Infusion related reaction [Unknown]
  - Night sweats [Unknown]
  - Chills [Unknown]
  - Lymphoma [Unknown]
  - Dyspnoea [Unknown]
  - Intraductal papillary breast neoplasm [Unknown]
